FAERS Safety Report 7505599-4 (Version None)
Quarter: 2011Q2

REPORT INFORMATION
  Report Type: 
  Country: None (occurrence: None)
  Receive Date: 20110526
  Receipt Date: 20110523
  Transmission Date: 20111010
  Serious: Yes (Other)
  Sender: FDA-Public Use
  Company Number: US-PFIZER INC-2011111068

PATIENT
  Sex: Male
  Weight: 67.12 kg

DRUGS (4)
  1. ADVIL LIQUI-GELS [Concomitant]
     Dosage: UNK
  2. LYRICA [Suspect]
     Indication: PAIN IN EXTREMITY
     Dosage: 150 MG, UNK
     Route: 048
     Dates: start: 20100401, end: 20100801
  3. ZYRTEC [Concomitant]
     Indication: HYPERSENSITIVITY
     Dosage: UNK
  4. ZANTAC [Concomitant]
     Indication: GASTROINTESTINAL DISORDER
     Dosage: UNK

REACTIONS (12)
  - NEOPLASM [None]
  - CHEST PAIN [None]
  - DIZZINESS [None]
  - PALPITATIONS [None]
  - HYPERSENSITIVITY [None]
  - SURGERY [None]
  - HAEMORRHAGE [None]
  - PHOTOSENSITIVITY REACTION [None]
  - GASTROINTESTINAL DISORDER [None]
  - DEPRESSION [None]
  - WEIGHT INCREASED [None]
  - HYPERACUSIS [None]
